FAERS Safety Report 17960421 (Version 3)
Quarter: 2020Q3

REPORT INFORMATION
  Report Type: Spontaneous
  Country: GB (occurrence: GB)
  Receive Date: 20200629
  Receipt Date: 20200909
  Transmission Date: 20201103
  Serious: Yes (Hospitalization, Other)
  Sender: FDA-Public Use
  Company Number: NVSC2020GB180301

PATIENT
  Age: 16 Year
  Sex: Female
  Weight: 57.2 kg

DRUGS (45)
  1. HUMIRA [Suspect]
     Active Substance: ADALIMUMAB
     Dosage: 40 MG, QW
     Route: 058
     Dates: start: 20180507, end: 20190325
  2. ONDANSETRON [Concomitant]
     Active Substance: ONDANSETRON
     Indication: VOMITING
  3. SODIUM PICOSULPHATE [Concomitant]
     Active Substance: SODIUM PICOSULFATE
     Dosage: 20 MG, QD
     Route: 048
     Dates: start: 20190709
  4. CHLORPHENAMINE MALEATE [Concomitant]
     Active Substance: CHLORPHENIRAMINE MALEATE
     Indication: PRURITUS
     Dosage: 4 MG, PRN
     Route: 048
     Dates: start: 20190704
  5. GAVISCON ADVANCE [Concomitant]
     Active Substance: POTASSIUM BICARBONATE\SODIUM ALGINATE
     Indication: DYSPEPSIA
     Dosage: UNK
     Route: 065
  6. METHOTREXATE. [Suspect]
     Active Substance: METHOTREXATE
     Dosage: 22.5 MG, QW
     Route: 048
     Dates: start: 20121011, end: 20190614
  7. DOCUSATE SODIUM. [Concomitant]
     Active Substance: DOCUSATE SODIUM
     Indication: CONSTIPATION
     Dosage: 300 MG, QD
     Route: 048
     Dates: start: 20190802
  8. LAXIDO [Concomitant]
     Active Substance: POLYETHYLENE GLYCOL 3350\POTASSIUM CHLORIDE\SODIUM BICARBONATE\SODIUM CHLORIDE
     Dosage: 8 DF, QD
     Route: 048
     Dates: start: 20200211, end: 20200416
  9. HUMIRA [Suspect]
     Active Substance: ADALIMUMAB
     Indication: CROHN^S DISEASE
     Dosage: 40 MG, BIW
     Route: 058
     Dates: start: 20131209, end: 20180430
  10. ONDANSETRON [Concomitant]
     Active Substance: ONDANSETRON
     Indication: NAUSEA
     Dosage: 16 MG, QD
     Route: 048
     Dates: start: 20190701
  11. DOCUSATE SODIUM. [Concomitant]
     Active Substance: DOCUSATE SODIUM
     Dosage: 450 MG, QD
     Route: 048
     Dates: start: 20200417, end: 20200714
  12. NUTRISON MULTIFIBRE [Concomitant]
     Indication: NUTRITIONAL SUPPLEMENTATION
     Dosage: 1800?2400 MLOVER 24 YEARS
     Route: 050
     Dates: start: 20190701
  13. PARACETAMOL [Concomitant]
     Active Substance: ACETAMINOPHEN
     Indication: ANALGESIC THERAPY
     Dosage: 1 MG, PRN
     Route: 048
     Dates: start: 20190626
  14. FOLIC ACID. [Concomitant]
     Active Substance: FOLIC ACID
     Indication: VITAMIN SUPPLEMENTATION
     Dosage: 5 MG, QW
     Route: 048
     Dates: start: 20190629
  15. FUSIDIC ACID [Concomitant]
     Active Substance: FUSIDIC ACID
     Indication: SKIN INFECTION
     Dosage: 6 %, QD
     Route: 061
     Dates: start: 20190716
  16. DICYCLOVERINE [Concomitant]
     Active Substance: DICYCLOMINE HYDROCHLORIDE
     Indication: CROHN^S DISEASE
     Dosage: 30 MG
     Route: 048
     Dates: start: 20141201
  17. LAXIDO [Concomitant]
     Active Substance: POLYETHYLENE GLYCOL 3350\POTASSIUM CHLORIDE\SODIUM BICARBONATE\SODIUM CHLORIDE
     Indication: CONSTIPATION
     Dosage: 2 UNK, QD (1?2 SACHETS)
     Route: 048
     Dates: start: 20190805, end: 20190812
  18. GAVISCON ADVANCE [Concomitant]
     Active Substance: POTASSIUM BICARBONATE\SODIUM ALGINATE
     Indication: GASTROOESOPHAGEAL REFLUX DISEASE
     Route: 048
     Dates: start: 20190802
  19. RELAXIT [Concomitant]
     Indication: CONSTIPATION
     Dosage: 5 ML (MICRO ENEMA ONCE AT NIGHT AS REQUIRED)
     Route: 054
     Dates: start: 20190822, end: 20200416
  20. DANDRAZOL [Concomitant]
     Indication: SEBORRHOEIC DERMATITIS
     Dosage: 2 UNK, QW (AS DIRECTED)
     Route: 061
     Dates: start: 20191128
  21. SODIUM PHOSPHATE [Concomitant]
     Active Substance: SODIUM PHOSPHATE
     Indication: CONSTIPATION
     Dosage: 100 MG, ONCE/SINGLE
     Route: 054
     Dates: start: 20200211, end: 20200211
  22. METHOTREXATE. [Suspect]
     Active Substance: METHOTREXATE
     Indication: CROHN^S DISEASE
     Dosage: 22.5 MG, QW
     Route: 048
     Dates: start: 20181018
  23. METHOTREXATE. [Suspect]
     Active Substance: METHOTREXATE
     Dosage: 22.5 MG, QW
     Route: 048
     Dates: start: 20190628, end: 20200328
  24. METHOTREXATE. [Suspect]
     Active Substance: METHOTREXATE
     Dosage: 22.5 MG, QW
     Route: 048
     Dates: start: 20200418
  25. SODIUM PICOSULPHATE [Concomitant]
     Active Substance: SODIUM PICOSULFATE
     Indication: CONSTIPATION
     Dosage: 10 MG, QD
     Route: 048
     Dates: start: 20190308, end: 20190314
  26. ADALIMUMAB [Concomitant]
     Active Substance: ADALIMUMAB
     Dosage: 40 MG, BID
     Route: 058
     Dates: start: 20190918
  27. DOMPERIDONE MALEATE [Concomitant]
     Active Substance: DOMPERIDONE MALEATE
     Indication: PRODUCT USED FOR UNKNOWN INDICATION
     Dosage: 30 MG, QD
     Route: 048
     Dates: start: 20200601, end: 20200608
  28. LAXIDO [Concomitant]
     Active Substance: POLYETHYLENE GLYCOL 3350\POTASSIUM CHLORIDE\SODIUM BICARBONATE\SODIUM CHLORIDE
     Dosage: 2 UNK, QD (DOSE:1?4 SACHETS)
     Route: 048
     Dates: start: 20200422, end: 20200520
  29. AZATHIOPRINE. [Suspect]
     Active Substance: AZATHIOPRINE
     Indication: CROHN^S DISEASE
     Dosage: 100 MG, QD
     Route: 048
     Dates: start: 20121011, end: 20181011
  30. SODIUM PICOSULPHATE [Concomitant]
     Active Substance: SODIUM PICOSULFATE
     Dosage: 20 MG, QD
     Route: 048
     Dates: start: 20190315, end: 20190320
  31. ADALIMUMAB [Concomitant]
     Active Substance: ADALIMUMAB
     Indication: CROHN^S DISEASE
     Dosage: 80 MG, QD
     Route: 058
     Dates: start: 20190820, end: 20190821
  32. ADALIMUMAB [Concomitant]
     Active Substance: ADALIMUMAB
     Dosage: 80 MG, QD (SINGLE DOSE)
     Route: 058
     Dates: start: 20190904, end: 20190904
  33. LACTULOSE. [Concomitant]
     Active Substance: LACTULOSE
     Indication: CONSTIPATION
     Dosage: 40 MG, QD
     Route: 048
     Dates: start: 20200207, end: 20200211
  34. BETNOVATE [Concomitant]
     Active Substance: BETAMETHASONE
     Indication: SEBORRHOEIC DERMATITIS
     Dosage: UNK (ALTERNATE DAYS FOR TWO WEEKS, THEN ONCE WEEKLY(AS DIRECTED))
     Route: 061
     Dates: start: 20191128
  35. ADALIMUMAB [Concomitant]
     Active Substance: ADALIMUMAB
     Dosage: 80 MG (AMGEVITA )
     Route: 058
     Dates: start: 20190820, end: 20190821
  36. MOVICOL [Concomitant]
     Active Substance: POLYETHYLENE GLYCOL 3350\POTASSIUM CHLORIDE\SODIUM BICARBONATE\SODIUM CHLORIDE
     Indication: CONSTIPATION
     Dosage: 8 DF, QD
     Route: 048
     Dates: start: 20191220, end: 20200207
  37. SODIUM PICOSULPHATE [Concomitant]
     Active Substance: SODIUM PICOSULFATE
     Indication: LAXATIVE SUPPORTIVE CARE
     Dosage: 20 MG, QD
     Route: 048
     Dates: start: 20200304, end: 20200308
  38. RELAXIT [Concomitant]
     Dosage: 5 MG, QD
     Route: 054
     Dates: start: 20200421
  39. ADALIMUMAB [Concomitant]
     Active Substance: ADALIMUMAB
     Indication: CROHN^S DISEASE
     Dosage: 80 MG, ONCE/SINGLE (AMGEVITA )
     Route: 058
     Dates: start: 20190904, end: 20190904
  40. LAXIDO [Concomitant]
     Active Substance: POLYETHYLENE GLYCOL 3350\POTASSIUM CHLORIDE\SODIUM BICARBONATE\SODIUM CHLORIDE
     Dosage: 8 DF, QD (1?2 SACHETS)
     Route: 048
     Dates: start: 20190813, end: 20191219
  41. ADALIMUMAB [Concomitant]
     Active Substance: ADALIMUMAB
     Dosage: 40 MG, BIW (AMGEVITA )
     Route: 058
     Dates: start: 20190918
  42. SODIUM PICOSULPHATE [Concomitant]
     Active Substance: SODIUM PICOSULFATE
     Dosage: 30 MG, QD
     Route: 048
     Dates: start: 20190320, end: 20190617
  43. SODIUM PICOSULPHATE [Concomitant]
     Active Substance: SODIUM PICOSULFATE
     Dosage: 20 MG, QD
     Route: 048
     Dates: start: 20190304, end: 20190308
  44. BISACODYL. [Concomitant]
     Active Substance: BISACODYL
     Indication: CONSTIPATION
     Dosage: 5 MG, QD
     Route: 054
     Dates: start: 20200717
  45. HYOSCINE BUTYLBROMIDE [Concomitant]
     Active Substance: BUTYLSCOPOLAMINE BROMIDE
     Indication: CROHN^S DISEASE
     Dosage: 10 MG
     Route: 048
     Dates: start: 20190407, end: 20200127

REACTIONS (3)
  - Crohn^s disease [Not Recovered/Not Resolved]
  - Impetigo [Recovered/Resolved]
  - Constipation [Not Recovered/Not Resolved]

NARRATIVE: CASE EVENT DATE: 20200402
